FAERS Safety Report 7653740-5 (Version None)
Quarter: 2011Q3

REPORT INFORMATION
  Report Type: 
  Country: None (occurrence: None)
  Receive Date: 20110803
  Receipt Date: 20110727
  Transmission Date: 20111222
  Serious: Yes (Disabling)
  Sender: FDA-Public Use
  Company Number: US-GLAXOSMITHKLINE-A0932028A

PATIENT
  Age: 50 Year
  Sex: Female
  Weight: 63.6 kg

DRUGS (3)
  1. LAMOTRIGINE [Suspect]
     Indication: AFFECTIVE DISORDER
     Dosage: 300MG PER DAY
     Route: 048
     Dates: start: 20100201, end: 20110701
  2. ALPRAZOLAM [Concomitant]
     Indication: ANXIETY
     Dosage: 1MG TWICE PER DAY
     Route: 048
     Dates: start: 20091201
  3. CYMBALTA [Concomitant]
     Indication: DEPRESSED MOOD
     Dosage: 30MG PER DAY
     Route: 048
     Dates: start: 20091201

REACTIONS (1)
  - AMNESIA [None]
